FAERS Safety Report 4331215-9 (Version None)
Quarter: 2004Q1

REPORT INFORMATION
  Report Type: 
  Country: None (occurrence: None)
  Receive Date: 20040331
  Receipt Date: 20040319
  Transmission Date: 20041129
  Serious: Yes (Hospitalization)
  Sender: FDA-Public Use
  Company Number: 2004PK00538

PATIENT
  Age: 83 Year
  Sex: Male
  Weight: 74 kg

DRUGS (10)
  1. METOPROLOL SUCCINATE [Suspect]
     Indication: HYPERTENSION
     Dosage: 23.75 MG BID PO
     Route: 048
     Dates: start: 20020601, end: 20031029
  2. DIGITOXIN TAB [Suspect]
     Indication: ATRIAL FIBRILLATION
     Dosage: 0.07 MG DAILY PO
     Route: 048
  3. DIGITOXIN TAB [Suspect]
     Indication: ATRIAL FIBRILLATION
     Dosage: 0.05 MG DAILY PO
     Route: 048
  4. ACTRAPID [Concomitant]
  5. AQUAPHOR TABLET [Concomitant]
  6. ISCOVER [Concomitant]
  7. LORZAAR [Concomitant]
  8. PANTOZOL [Concomitant]
  9. PROTAPHANE MC [Concomitant]
  10. UROXATRAL [Concomitant]

REACTIONS (6)
  - ATRIAL FIBRILLATION [None]
  - BLOOD GLUCOSE INCREASED [None]
  - BLOOD PRESSURE INCREASED [None]
  - BRADYCARDIA [None]
  - CHEST PAIN [None]
  - DRUG INTERACTION [None]
